FAERS Safety Report 16118186 (Version 1)
Quarter: 2019Q1

REPORT INFORMATION
  Report Type: Spontaneous
  Country: US (occurrence: US)
  Receive Date: 20190326
  Receipt Date: 20190326
  Transmission Date: 20190418
  Serious: No
  Sender: FDA-Public Use
  Company Number: US-BAYER-2019-054147

PATIENT
  Age: 44 Year
  Sex: Female

DRUGS (1)
  1. MENOSTAR [Suspect]
     Active Substance: ESTRADIOL
     Indication: MENOPAUSE
     Dosage: 14 MCG/24HR, QD
     Route: 062
     Dates: start: 201901

REACTIONS (3)
  - Depression [None]
  - Product use in unapproved indication [None]
  - Myalgia [Not Recovered/Not Resolved]

NARRATIVE: CASE EVENT DATE: 201901
